FAERS Safety Report 10806767 (Version 1)
Quarter: 2015Q1

REPORT INFORMATION
  Report Type: Report from Study
  Country: US (occurrence: US)
  Receive Date: 20150217
  Receipt Date: 20150217
  Transmission Date: 20150721
  Serious: No
  Sender: FDA-Public Use
  Company Number: US-ABBVIE-14K-163-1258548-00

PATIENT
  Sex: Female

DRUGS (9)
  1. HUMIRA [Suspect]
     Active Substance: ADALIMUMAB
     Dosage: TOOK EVERY 2.5 WEEKS IF HAD JOINT PAIN OR ELSE TOOK 3 WEEKS
     Dates: start: 201308
  2. MACROBID [Concomitant]
     Active Substance: NITROFURANTOIN\NITROFURANTOIN MONOHYDRATE
     Indication: URINARY TRACT INFECTION
  3. HUMIRA [Suspect]
     Active Substance: ADALIMUMAB
     Indication: PSORIATIC ARTHROPATHY
     Dates: start: 2009
  4. HUMIRA [Suspect]
     Active Substance: ADALIMUMAB
     Dosage: ONE DOSE
  5. ANTIBIOTICS [Suspect]
     Active Substance: UNSPECIFIED INGREDIENT
     Indication: BRONCHITIS
     Dates: start: 2013
  6. UROCET [Concomitant]
     Indication: PH URINE INCREASED
  7. LEVAQUIN [Suspect]
     Active Substance: LEVOFLOXACIN
     Indication: PRODUCT USED FOR UNKNOWN INDICATION
     Dates: start: 2013
  8. CALCITRIOL. [Concomitant]
     Active Substance: CALCITRIOL
     Indication: PRODUCT USED FOR UNKNOWN INDICATION
  9. MACROBID [Concomitant]
     Active Substance: NITROFURANTOIN\NITROFURANTOIN MONOHYDRATE
     Indication: PROPHYLAXIS

REACTIONS (16)
  - Urinary tract infection [Unknown]
  - Bladder pain [Unknown]
  - Incorrect dose administered [Unknown]
  - Bronchitis [Recovered/Resolved]
  - Pyrexia [Unknown]
  - Psoriatic arthropathy [Unknown]
  - Urinary tract infection [Unknown]
  - Cough [Unknown]
  - Device issue [Unknown]
  - Fungal infection [Recovered/Resolved]
  - Renal impairment [Unknown]
  - Urinary tract infection [Unknown]
  - Fungal infection [Not Recovered/Not Resolved]
  - Rash [Unknown]
  - Sinusitis [Unknown]
  - Hypertonic bladder [Unknown]

NARRATIVE: CASE EVENT DATE: 2013
